FAERS Safety Report 23314052 (Version 1)
Quarter: 2023Q4

REPORT INFORMATION
  Report Type: Spontaneous
  Country: BE (occurrence: None)
  Receive Date: 20231219
  Receipt Date: 20231219
  Transmission Date: 20240109
  Serious: Yes (Hospitalization)
  Sender: FDA-Public Use
  Company Number: 2023A279909

PATIENT
  Age: 83 Year
  Sex: Female
  Weight: 48 kg

DRUGS (14)
  1. DAPAGLIFLOZIN [Suspect]
     Active Substance: DAPAGLIFLOZIN
     Route: 048
  2. RELAXINE [Concomitant]
  3. PERINDOPRIL [Concomitant]
     Active Substance: PERINDOPRIL
  4. PANTOPRAZOLE [Concomitant]
     Active Substance: PANTOPRAZOLE
  5. COMBIVENT [Concomitant]
     Active Substance: ALBUTEROL SULFATE\IPRATROPIUM BROMIDE
     Dosage: 0.5 MG/2.5 ML + 2.5 MG/2.5 ML
  6. BUMETANIDE [Concomitant]
     Active Substance: BUMETANIDE
  7. BUDESONIDE [Concomitant]
     Active Substance: BUDESONIDE
     Dosage: 1 MG/2 ML
  8. TOUJEO [Concomitant]
     Active Substance: INSULIN GLARGINE
     Dosage: 300UI/ML (SCH?MA {100 : 4U TOUJ?O ENTRE 100 ET 200 MG: 8U DE TOUJ?O }200 : 10 U TOUJ?O }250 : 12U...
  9. AVELOX [Concomitant]
     Active Substance: MOXIFLOXACIN HYDROCHLORIDE
  10. ENOXAPARIN SODIUM [Concomitant]
     Active Substance: ENOXAPARIN SODIUM
     Dosage: 2,000 IE
  11. MINOCYCLINE [Concomitant]
     Active Substance: MINOCYCLINE HYDROCHLORIDE
  12. METFORMIN HYDROCHLORIDE [Concomitant]
     Active Substance: METFORMIN HYDROCHLORIDE
  13. ASPIRIN [Concomitant]
     Active Substance: ASPIRIN
  14. CLOPIDOGREL [Concomitant]
     Active Substance: CLOPIDOGREL BISULFATE

REACTIONS (2)
  - Groin abscess [Recovering/Resolving]
  - Vascular device infection [Recovering/Resolving]

NARRATIVE: CASE EVENT DATE: 20230926
